FAERS Safety Report 14077648 (Version 2)
Quarter: 2018Q1

REPORT INFORMATION
  Report Type: Report from Study
  Country: US (occurrence: US)
  Receive Date: 20171012
  Receipt Date: 20180307
  Transmission Date: 20180508
  Serious: Yes (Hospitalization)
  Sender: FDA-Public Use
  Company Number: US-ROCHE-2003884

PATIENT
  Age: 60 Year
  Sex: Female
  Weight: 167.98 kg

DRUGS (11)
  1. ATEZOLIZUMAB. [Suspect]
     Active Substance: ATEZOLIZUMAB
     Indication: BREAST CANCER
     Dosage: MOST RECENT DOSE PRIOR TO EVENT ON 03/JUL/2017?THERAPY INTERRUPTED ON 25/JUL/2017
     Route: 042
     Dates: start: 20170703, end: 20170801
  2. DOCETAXEL. [Suspect]
     Active Substance: DOCETAXEL
     Indication: BREAST CANCER
     Dosage: MOST RECENT DOSE PRIOR TO EVENT ON 21/SEP/2017
     Route: 042
     Dates: start: 20170822
  3. CLONAZEPAM. [Concomitant]
     Active Substance: CLONAZEPAM
     Route: 065
     Dates: start: 20170430
  4. ACETAMINOPHEN/HYDROCODONE [Concomitant]
     Active Substance: ACETAMINOPHEN\HYDROCODONE
     Dosage: 80/2600 MG DAILY
     Route: 065
     Dates: start: 20170710
  5. PERTUZUMAB. [Suspect]
     Active Substance: PERTUZUMAB
     Indication: BREAST CANCER
     Dosage: LOADING DOSE AS PER PROTOCOL?MOST RECENT DOSE PRIOR TO EVENT ON 21/SEP/2017
     Route: 042
     Dates: start: 20170822
  6. PERTUZUMAB. [Suspect]
     Active Substance: PERTUZUMAB
     Dosage: MAINTENANCE DOSE AS PER PROTOCOL
     Route: 042
     Dates: start: 20170822
  7. TRASTUZUMAB EMTANSINE [Suspect]
     Active Substance: ADO-TRASTUZUMAB EMTANSINE
     Indication: BREAST CANCER
     Dosage: THERAPY INTERRUPTED ON 25/JUL/2017 ?MOST RECENT DOSE PRIOR TO EVENT ON 01/AUG/2017 (THERAPY RESTARTE
     Route: 042
     Dates: start: 20170703
  8. PROVENTIL HFA [Concomitant]
     Active Substance: ALBUTEROL SULFATE
     Route: 065
  9. CARBOPLATIN. [Suspect]
     Active Substance: CARBOPLATIN
     Indication: BREAST CANCER
     Dosage: MOST RECENT DOSE PRIOR TO EVENT ON 21/SEP/2017
     Route: 042
     Dates: start: 20170822
  10. LEVOTHYROXINE. [Concomitant]
     Active Substance: LEVOTHYROXINE
     Route: 065
     Dates: start: 20170601
  11. FLUOXETINE [Concomitant]
     Active Substance: FLUOXETINE HYDROCHLORIDE
     Route: 065
     Dates: start: 20170412

REACTIONS (1)
  - Gastroenteritis viral [Recovered/Resolved]

NARRATIVE: CASE EVENT DATE: 20171001
